FAERS Safety Report 17122027 (Version 5)
Quarter: 2020Q3

REPORT INFORMATION
  Report Type: Spontaneous
  Country: DE (occurrence: DE)
  Receive Date: 20191206
  Receipt Date: 20200825
  Transmission Date: 20201102
  Serious: Yes (Death, Other)
  Sender: FDA-Public Use
  Company Number: DE-MYLANLABS-2019M1120322

PATIENT
  Age: 17 Year
  Sex: Male
  Weight: 105 kg

DRUGS (4)
  1. FENTANYL. [Suspect]
     Active Substance: FENTANYL
     Indication: PRODUCT USED FOR UNKNOWN INDICATION
     Dosage: 100 MICROGRAM, QH (3DF),TOTAL: 300 UG/H
     Route: 062
  2. VALSARTAN. [Interacting]
     Active Substance: VALSARTAN
     Indication: PRODUCT USED FOR UNKNOWN INDICATION
     Dosage: UNK
     Route: 065
  3. NALOXONE HYDROCHLORIDE W/TILIDINE HYDROCHLORI [Interacting]
     Active Substance: NALOXONE HYDROCHLORIDE\TILIDINE HYDROCHLORIDE
     Indication: PRODUCT USED FOR UNKNOWN INDICATION
     Dosage: UNK
     Route: 065
  4. CITALOPRAM [Interacting]
     Active Substance: CITALOPRAM HYDROBROMIDE
     Indication: PRODUCT USED FOR UNKNOWN INDICATION
     Dosage: UNK
     Route: 065

REACTIONS (8)
  - Intentional product misuse [Fatal]
  - Brain oedema [Unknown]
  - Drug intolerance [Unknown]
  - Drug interaction [Fatal]
  - Pulmonary oedema [Unknown]
  - Urinary retention [Unknown]
  - Toxicity to various agents [Fatal]
  - Prescription drug used without a prescription [Fatal]
